FAERS Safety Report 5046293-1 (Version None)
Quarter: 2006Q2

REPORT INFORMATION
  Report Type: 
  Country: None (occurrence: None)
  Receive Date: 20060629
  Receipt Date: 20060619
  Transmission Date: 20061013
  Serious: Yes (Other)
  Sender: FDA-Public Use
  Company Number: 2006071931

PATIENT
  Sex: Female

DRUGS (2)
  1. DELTASONE [Suspect]
     Indication: MULTIPLE SCLEROSIS
  2. PREDNISONE TAB [Suspect]
     Indication: MULTIPLE SCLEROSIS

REACTIONS (7)
  - ACTIVITIES OF DAILY LIVING IMPAIRED [None]
  - DISEASE PROGRESSION [None]
  - FRUSTRATION [None]
  - MULTIPLE SCLEROSIS RELAPSE [None]
  - PHARMACEUTICAL PRODUCT COMPLAINT [None]
  - REACTION TO DRUG EXCIPIENTS [None]
  - THERAPEUTIC RESPONSE UNEXPECTED WITH DRUG SUBSTITUTION [None]
